FAERS Safety Report 13455263 (Version 4)
Quarter: 2017Q3

REPORT INFORMATION
  Report Type: Spontaneous
  Country: US (occurrence: US)
  Receive Date: 20170419
  Receipt Date: 20170804
  Transmission Date: 20171127
  Serious: No
  Sender: FDA-Public Use
  Company Number: US-PFIZER INC-2017162432

PATIENT
  Age: 88 Year
  Sex: Female
  Weight: 81.63 kg

DRUGS (3)
  1. IBRANCE [Suspect]
     Active Substance: PALBOCICLIB
     Indication: BREAST CANCER METASTATIC
     Dosage: 125 MG, CYCLIC (DAY 1-21 Q 28 DAYS)
     Route: 048
     Dates: start: 201602
  2. IBRANCE [Suspect]
     Active Substance: PALBOCICLIB
     Dosage: 100 MG, CYCLIC (DAY 1-21 Q 28 DAYS)
     Route: 048
     Dates: start: 201602
  3. IBRANCE [Suspect]
     Active Substance: PALBOCICLIB
     Dosage: 100 MG, CYCLIC (1 CAPSULE DAILY 1-21/ DAYS)
     Route: 048
     Dates: start: 20170201

REACTIONS (11)
  - Infection [Unknown]
  - Headache [Unknown]
  - Excessive cerumen production [Unknown]
  - Renal disorder [Unknown]
  - Blood iron decreased [Unknown]
  - Alopecia [Unknown]
  - Tearfulness [Unknown]
  - Nausea [Unknown]
  - Fatigue [Unknown]
  - Neoplasm progression [Unknown]
  - Emotional disorder [Unknown]
